FAERS Safety Report 4932933-1 (Version None)
Quarter: 2006Q1

REPORT INFORMATION
  Report Type: 
  Country: None (occurrence: None)
  Receive Date: 20060301
  Receipt Date: 20060301
  Transmission Date: 20060701
  Serious: Yes (Hospitalization)
  Sender: FDA-Public Use
  Company Number: None

PATIENT
  Age: 90 Year
  Sex: Female
  Weight: 183 kg

DRUGS (1)
  1. FERRLECIT [Suspect]
     Indication: ANAEMIA
     Dosage: 250 MG ONCE IV
     Route: 042
     Dates: start: 20060224, end: 20060224

REACTIONS (5)
  - BLOOD PRESSURE SYSTOLIC INCREASED [None]
  - INFUSION RELATED REACTION [None]
  - NECK PAIN [None]
  - PAIN IN JAW [None]
  - SHOULDER PAIN [None]
